FAERS Safety Report 4382422-0 (Version None)
Quarter: 2004Q2

REPORT INFORMATION
  Report Type: 
  Country: None (occurrence: None)
  Receive Date: 20040617
  Receipt Date: 20040609
  Transmission Date: 20050107
  Serious: Yes (Life-Threatening, Hospitalization)
  Sender: FDA-Public Use
  Company Number: 2004SE03241

PATIENT
  Age: 66 Year
  Sex: Male

DRUGS (6)
  1. CANDESARTAN CILEXETIL [Suspect]
     Indication: COGNITIVE DISORDER
     Dosage: 8 MG QD PO
     Route: 048
     Dates: start: 20040524, end: 20040530
  2. CANDESARTAN CILEXETIL [Suspect]
     Indication: PROPHYLAXIS
     Dosage: 8 MG QD PO
     Route: 048
     Dates: start: 20040524, end: 20040530
  3. METOPROLOL TARTRATE [Concomitant]
  4. MOLSIDOMINE [Concomitant]
  5. ASPIRIN [Concomitant]
  6. ATORVASTATIN CALCIUM [Concomitant]

REACTIONS (2)
  - HYPERTENSIVE CRISIS [None]
  - MYOCARDIAL INFARCTION [None]
